FAERS Safety Report 4396567-2 (Version None)
Quarter: 2004Q2

REPORT INFORMATION
  Report Type: 
  Country: None (occurrence: None)
  Receive Date: 20040524
  Receipt Date: 20030820
  Transmission Date: 20050107
  Serious: Yes (Hospitalization)
  Sender: FDA-Public Use
  Company Number: WSDF 355

PATIENT
  Age: 63 Year
  Sex: Male

DRUGS (1)
  1. WINRHO SDF [Suspect]
     Indication: IDIOPATHIC THROMBOCYTOPENIC PURPURA
     Dosage: 4000 MCG, IV ONCE
     Route: 042
     Dates: start: 20030731

REACTIONS (7)
  - BODY TEMPERATURE INCREASED [None]
  - BRONCHOSPASM [None]
  - CHILLS [None]
  - EPISTAXIS [None]
  - HYPERHIDROSIS [None]
  - HYPERTENSION [None]
  - TACHYCARDIA [None]
